FAERS Safety Report 5646593-8 (Version None)
Quarter: 2008Q1

REPORT INFORMATION
  Report Type: 
  Country: None (occurrence: None)
  Receive Date: 20080303
  Receipt Date: 20080222
  Transmission Date: 20080703
  Serious: Yes (Hospitalization)
  Sender: FDA-Public Use
  Company Number: PHBS2008US02623

PATIENT
  Age: 75 Year
  Sex: Female

DRUGS (1)
  1. METOPROLOL TARTRATE [Suspect]
     Dosage: UNK, UNK

REACTIONS (7)
  - ABDOMINAL PAIN UPPER [None]
  - ACUTE MYOCARDIAL INFARCTION [None]
  - BRADYCARDIA [None]
  - DRUG PRESCRIBING ERROR [None]
  - DYSPNOEA [None]
  - HYPOTENSION [None]
  - MEDICATION ERROR [None]
